FAERS Safety Report 9225580 (Version 1)
Quarter: 2013Q2

REPORT INFORMATION
  Report Type: Spontaneous
  Country: US (occurrence: US)
  Receive Date: 20130411
  Receipt Date: 20130411
  Transmission Date: 20140414
  Serious: No
  Sender: FDA-Public Use
  Company Number: US-ASTRAZENECA-2013SE18992

PATIENT
  Age: 56 Year
  Sex: Female
  Weight: 54.4 kg

DRUGS (3)
  1. NEXIUM [Suspect]
     Route: 048
  2. LEVOTHYROXINE [Concomitant]
  3. GUAFENISINE [Concomitant]

REACTIONS (2)
  - Sluggishness [Unknown]
  - Intentional drug misuse [Unknown]
